FAERS Safety Report 9366326 (Version 1)
Quarter: 2013Q2

REPORT INFORMATION
  Report Type: Spontaneous
  Country: US (occurrence: US)
  Receive Date: 20130625
  Receipt Date: 20130625
  Transmission Date: 20140414
  Serious: No
  Sender: FDA-Public Use
  Company Number: US-GLAXOSMITHKLINE-A0995791A

PATIENT
  Age: 48 Year
  Sex: Male

DRUGS (6)
  1. CHLORPHENIRAMINE [Concomitant]
  2. CLORAZEPATE [Concomitant]
  3. OMEPRAZOLE [Concomitant]
  4. ADVAIR [Concomitant]
  5. LISINOPRIL [Concomitant]
  6. VERAMYST [Suspect]
     Indication: RHINITIS ALLERGIC
     Dosage: 2PUFF PER DAY
     Route: 045
     Dates: start: 201205

REACTIONS (1)
  - Drug ineffective [Not Recovered/Not Resolved]
